FAERS Safety Report 8936914 (Version 1)
Quarter: 2012Q4

REPORT INFORMATION
  Report Type: 
  Country: CA (occurrence: CA)
  Receive Date: 20121130
  Receipt Date: 20121130
  Transmission Date: 20130627
  Serious: Yes (Hospitalization)
  Sender: FDA-Public Use
  Company Number: CA-B.I. PHARMACEUTICALS,INC./RIDGEFIELD-2009-BP-03712BP

PATIENT
  Age: 47 Year
  Sex: Male

DRUGS (1)
  1. MIRAPEX [Suspect]
     Indication: RESTLESS LEGS SYNDROME
     Dates: start: 200006, end: 20060712

REACTIONS (5)
  - Suicide attempt [Unknown]
  - Dependence [Unknown]
  - Pathological gambling [Recovered/Resolved]
  - Compulsive shopping [Unknown]
  - Suicidal ideation [Unknown]
